FAERS Safety Report 16031060 (Version 1)
Quarter: 2019Q1

REPORT INFORMATION
  Report Type: Spontaneous
  Country: GB (occurrence: PL)
  Receive Date: 20190304
  Receipt Date: 20190304
  Transmission Date: 20190418
  Serious: Yes (Death, Life-Threatening)
  Sender: FDA-Public Use
  Company Number: PL-FRESENIUS KABI-FK201901961

PATIENT
  Age: 67 Year
  Sex: Female
  Weight: 70 kg

DRUGS (22)
  1. DEXAMETHASONE SODIUM PHOSPHATE. [Suspect]
     Active Substance: DEXAMETHASONE SODIUM PHOSPHATE
     Indication: PRODUCT USED FOR UNKNOWN INDICATION
  2. VANCOMYCIN (MANUFACTURER UNKNOWN) [Suspect]
     Active Substance: VANCOMYCIN
     Indication: NOSOCOMIAL INFECTION
     Dosage: UNK
     Route: 065
  3. GLUCOSE (MANUFACTURER UNKNOWN) [Suspect]
     Active Substance: DEXTROSE
     Indication: PRODUCT USED FOR UNKNOWN INDICATION
     Dosage: 1000ML/DAY
     Route: 042
     Dates: start: 20181116, end: 20181116
  4. IMIPENEM (MANUFACTURER UNKNOWN) [Suspect]
     Active Substance: IMIPENEM
     Indication: NOSOCOMIAL INFECTION
     Dosage: UNK
     Route: 065
  5. INSULIN HUMAN [Suspect]
     Active Substance: INSULIN HUMAN
     Dosage: 56 UNITS OF INSULIN (2 UNITS PER HOUR BETWEEN HOURS 7 AM TILL 7 PM  13 HOURS PLUS TWO TIMES 15 UNIT
     Route: 042
     Dates: start: 20181124, end: 20181124
  6. INSULIN HUMAN [Suspect]
     Active Substance: INSULIN HUMAN
     Dosage: INFUSION OF INSULIN WAS CONTINUED.
     Route: 042
     Dates: start: 20181125, end: 20181125
  7. INSULIN HUMAN [Suspect]
     Active Substance: INSULIN HUMAN
     Route: 042
     Dates: start: 20181117, end: 20181117
  8. NOREPINEPHRINE BITARTRATE. [Suspect]
     Active Substance: NOREPINEPHRINE BITARTRATE
     Indication: PRODUCT USED FOR UNKNOWN INDICATION
  9. INSULIN HUMAN [Suspect]
     Active Substance: INSULIN HUMAN
     Route: 042
     Dates: start: 20181123, end: 20181123
  10. PANTOPRAZOLE SODIUM SESQUIHYDRATE [Suspect]
     Active Substance: PANTOPRAZOLE SODIUM
     Indication: PRODUCT USED FOR UNKNOWN INDICATION
  11. INSULIN HUMAN [Suspect]
     Active Substance: INSULIN HUMAN
     Route: 042
     Dates: start: 20181122, end: 20181122
  12. INSULIN HUMAN [Suspect]
     Active Substance: INSULIN HUMAN
     Dosage: INTRAVENOUS INFUSION OF INSULIN BETWEEN 2 AND 7, 1 UNIT PER HOUR
     Route: 042
     Dates: start: 20181123, end: 20181123
  13. MORPHINE [Suspect]
     Active Substance: MORPHINE
     Indication: PRODUCT USED FOR UNKNOWN INDICATION
     Route: 042
     Dates: start: 20181124, end: 20181124
  14. PIRACETAM [Suspect]
     Active Substance: PIRACETAM
     Indication: PRODUCT USED FOR UNKNOWN INDICATION
  15. ORNITHINE ASPARTATE [Suspect]
     Active Substance: ORNITHINE ASPARTATE
     Indication: PRODUCT USED FOR UNKNOWN INDICATION
  16. INSULIN HUMAN [Suspect]
     Active Substance: INSULIN HUMAN
     Route: 042
     Dates: start: 20181118, end: 20181118
  17. INSULIN HUMAN [Suspect]
     Active Substance: INSULIN HUMAN
     Route: 042
     Dates: start: 20181121, end: 20181121
  18. INSULIN HUMAN [Suspect]
     Active Substance: INSULIN HUMAN
     Route: 042
     Dates: start: 20181116, end: 20181116
  19. GLUCOSE (MANUFACTURER UNKNOWN) [Suspect]
     Active Substance: DEXTROSE
     Dosage: 1500ML/DAY
     Route: 042
     Dates: start: 20181117, end: 20181117
  20. GLUCOSE (MANUFACTURER UNKNOWN) [Suspect]
     Active Substance: DEXTROSE
     Dosage: 1000ML/DAY
     Route: 042
     Dates: start: 20181118, end: 20181125
  21. INSULIN HUMAN [Suspect]
     Active Substance: INSULIN HUMAN
     Indication: DIABETES MELLITUS
     Route: 042
     Dates: start: 20181119, end: 20181119
  22. INSULIN HUMAN [Suspect]
     Active Substance: INSULIN HUMAN
     Route: 042
     Dates: start: 20181120, end: 20181120

REACTIONS (12)
  - Heart rate increased [Fatal]
  - Hypoglycaemia [Fatal]
  - Chromaturia [Fatal]
  - Hyperkalaemia [Fatal]
  - Central nervous system injury [Fatal]
  - Acidosis [Fatal]
  - Prescribed overdose [Fatal]
  - Loss of consciousness [Fatal]
  - Hypoxia [Fatal]
  - Blood pressure decreased [Fatal]
  - Hyperchloraemia [Fatal]
  - Tachyarrhythmia [Fatal]

NARRATIVE: CASE EVENT DATE: 20181124
